FAERS Safety Report 7207391-7 (Version None)
Quarter: 2010Q4

REPORT INFORMATION
  Report Type: 
  Country: None (occurrence: None)
  Receive Date: 20101221
  Receipt Date: 20101206
  Transmission Date: 20110411
  Serious: Yes (Other)
  Sender: FDA-Public Use
  Company Number: 2010P1003109

PATIENT
  Age: 52 Year
  Sex: Male

DRUGS (2)
  1. METRONIDAZOLE [Suspect]
     Indication: BRAIN ABSCESS
     Dosage: 2 G, QD; IV
     Route: 042
  2. CEFTRIAXONE [Concomitant]

REACTIONS (7)
  - DIPLOPIA [None]
  - DIZZINESS [None]
  - DYSPHAGIA [None]
  - HEMIPARESIS [None]
  - TINNITUS [None]
  - TOXIC ENCEPHALOPATHY [None]
  - VITH NERVE PARALYSIS [None]
